FAERS Safety Report 6085469-1 (Version None)
Quarter: 2009Q1

REPORT INFORMATION
  Report Type: 
  Country: None (occurrence: None)
  Receive Date: 20090217
  Receipt Date: 20090209
  Transmission Date: 20090719
  Serious: Yes (Hospitalization)
  Sender: FDA-Public Use
  Company Number: WAES 0812USA02711

PATIENT
  Age: 77 Year
  Sex: Male

DRUGS (17)
  1. APREPITANT [Suspect]
     Indication: PROPHYLAXIS OF NAUSEA AND VOMITING
     Dosage: 125 MG 1X, PO; 80 MG 1X, PO
     Route: 048
     Dates: start: 20081208, end: 20081208
  2. APREPITANT [Suspect]
     Indication: PROPHYLAXIS OF NAUSEA AND VOMITING
     Dosage: 125 MG 1X, PO; 80 MG 1X, PO
     Route: 048
     Dates: start: 20081209, end: 20081209
  3. INJ PLACEBO (UNSPECIFIED) [Suspect]
     Indication: PROPHYLAXIS OF NAUSEA AND VOMITING
  4. ONDANSETRON [Suspect]
     Indication: PROPHYLAXIS OF NAUSEA AND VOMITING
     Dosage: 50 ML, IV
     Route: 042
     Dates: start: 20081208, end: 20081208
  5. DEXAMETHASONE [Suspect]
     Indication: PROPHYLAXIS OF NAUSEA AND VOMITING
     Dosage: 8 MG AM, PO
     Route: 048
     Dates: start: 20081209, end: 20081209
  6. CISPLATIN [Suspect]
     Indication: LUNG NEOPLASM MALIGNANT
     Dosage: 150 MG, IV
     Route: 042
     Dates: start: 20081208, end: 20081208
  7. GEMCITABINE [Suspect]
     Indication: LUNG NEOPLASM MALIGNANT
     Dosage: 2300 MG, IV
     Route: 042
     Dates: start: 20081208
  8. ENOXAPARIN SODIUM [Concomitant]
  9. PANTOZOL [Concomitant]
  10. PLAVIX [Concomitant]
  11. PRIMPERAN [Concomitant]
  12. THERAPY UNSPECIFIED [Concomitant]
  13. ASPIRIN [Concomitant]
  14. BISOPROLOL [Concomitant]
  15. FLECAINIDE ACETATE [Concomitant]
  16. GEMCITABINE [Concomitant]
  17. SIMVASTATIN [Concomitant]

REACTIONS (3)
  - ANGINA PECTORIS [None]
  - DYSPNOEA [None]
  - NON-CARDIAC CHEST PAIN [None]
